FAERS Safety Report 9560387 (Version 1)
Quarter: 2013Q3

REPORT INFORMATION
  Report Type: Spontaneous
  Country: GB (occurrence: None)
  Receive Date: 20130925
  Receipt Date: 20130925
  Transmission Date: 20140515
  Serious: Yes (Other)
  Sender: FDA-Public Use
  Company Number: AUR-APL-2013-07822

PATIENT
  Age: 42 Year
  Sex: Female
  Weight: 53 kg

DRUGS (2)
  1. SUMATRIPTAN (SUMATRIPTAN) [Suspect]
     Indication: PRODUCT USED FOR UNKNOWN INDICATION
     Dates: start: 20130522
  2. FEXOFENADINE [Concomitant]

REACTIONS (3)
  - Dyspnoea [None]
  - Asthenia [None]
  - Pharyngeal oedema [None]
